FAERS Safety Report 6764689-4 (Version None)
Quarter: 2010Q2

REPORT INFORMATION
  Report Type: 
  Country: None (occurrence: None)
  Receive Date: 20100610
  Receipt Date: 20100601
  Transmission Date: 20101027
  Serious: Yes (Congenital Anomaly)
  Sender: FDA-Public Use
  Company Number: ES-ABBOTT-10P-144-0646424-00

PATIENT
  Age: 1 Day
  Sex: Male

DRUGS (1)
  1. VALPROATE SODIUM [Suspect]
     Indication: DRUG EXPOSURE DURING PREGNANCY
     Route: 064

REACTIONS (9)
  - CARDIAC MURMUR [None]
  - CONGENITAL ANOMALY [None]
  - CONGENITAL FOOT MALFORMATION [None]
  - CONGENITAL HAND MALFORMATION [None]
  - DRUG EXPOSURE DURING PREGNANCY [None]
  - JOINT DISLOCATION [None]
  - LIMB MALFORMATION [None]
  - RENAL FUSION ANOMALY [None]
  - TALIPES [None]
